FAERS Safety Report 7312007-5 (Version None)
Quarter: 2011Q1

REPORT INFORMATION
  Report Type: 
  Country: None (occurrence: None)
  Receive Date: 20110224
  Receipt Date: 20110131
  Transmission Date: 20110831
  Serious: No
  Sender: FDA-Public Use
  Company Number: US-B.I. PHARMACEUTICALS,INC./RIDGEFIELD-2011-BP-03122BP

PATIENT
  Sex: Male

DRUGS (11)
  1. DIOVAN [Concomitant]
     Dosage: 320 MG
  2. MULTI-VITAMIN [Concomitant]
     Indication: PROPHYLAXIS
  3. GLUCOSAMINE [Concomitant]
     Indication: ARTHRITIS
  4. CARDIZEM [Concomitant]
     Indication: ATRIAL FIBRILLATION
     Dosage: 360 MG
  5. CITALOPRAM [Concomitant]
     Indication: INSOMNIA
     Dosage: 20 MG
  6. FUROSEMIDE [Concomitant]
     Dosage: 40 MG
  7. LISINOPRIL [Concomitant]
     Indication: HYPERTENSION
     Dosage: 80 MG
  8. HYDROCODONE BITARTRATE [Concomitant]
     Indication: ARTHRITIS
  9. PRADAXA [Suspect]
     Indication: ATRIAL FIBRILLATION
     Dosage: 300 MG
     Route: 048
     Dates: start: 20110127
  10. DIGOXIN [Concomitant]
     Dosage: 125 MG
  11. POTASSIUM [Concomitant]
     Dosage: 40 MEQ

REACTIONS (1)
  - DYSPHAGIA [None]
